FAERS Safety Report 6008508-2 (Version None)
Quarter: 2008Q4

REPORT INFORMATION
  Report Type: 
  Country: None (occurrence: None)
  Receive Date: 20081217
  Receipt Date: 20081208
  Transmission Date: 20090506
  Serious: Yes (Hospitalization)
  Sender: FDA-Public Use
  Company Number: US-ELI_LILLY_AND_COMPANY-US200812002015

PATIENT
  Age: 20 Year
  Sex: Female

DRUGS (3)
  1. ZYPREXA [Suspect]
     Indication: BIPOLAR DISORDER
     Dosage: 2.5 MG, UNK
     Dates: start: 20080901
  2. ZYPREXA [Suspect]
     Dosage: 5 MG, DAILY (1/D)
     Dates: start: 20081024
  3. WELLBUTRIN [Concomitant]

REACTIONS (11)
  - ANOREXIA [None]
  - BIPOLAR DISORDER [None]
  - DIZZINESS [None]
  - INCREASED APPETITE [None]
  - JOINT STIFFNESS [None]
  - MUSCLE DISORDER [None]
  - NAUSEA [None]
  - PAIN [None]
  - THINKING ABNORMAL [None]
  - VISION BLURRED [None]
  - WEIGHT INCREASED [None]
